FAERS Safety Report 16703759 (Version 7)
Quarter: 2020Q2

REPORT INFORMATION
  Report Type: Spontaneous
  Country: US (occurrence: US)
  Receive Date: 20190814
  Receipt Date: 20200519
  Transmission Date: 20200713
  Serious: No
  Sender: FDA-Public Use
  Company Number: US-PFIZER INC-2019345988

PATIENT
  Age: 80 Year
  Sex: Female

DRUGS (2)
  1. DETROL [Suspect]
     Active Substance: TOLTERODINE TARTRATE
     Indication: IRRITABLE BOWEL SYNDROME
  2. DETROL [Suspect]
     Active Substance: TOLTERODINE TARTRATE
     Indication: INCONTINENCE
     Dosage: UNK, 1X/DAY

REACTIONS (1)
  - Drug ineffective [Not Recovered/Not Resolved]
